FAERS Safety Report 7582331-X (Version None)
Quarter: 2011Q2

REPORT INFORMATION
  Report Type: 
  Country: None (occurrence: None)
  Receive Date: 20110623
  Receipt Date: 20110617
  Transmission Date: 20111010
  Serious: Yes (Other)
  Sender: FDA-Public Use
  Company Number: JP-2011-10689

PATIENT
  Age: 83 Year
  Sex: Male

DRUGS (2)
  1. PLETAL [Suspect]
     Indication: THROMBOSIS PROPHYLAXIS
     Dosage: , ORAL
     Route: 048
  2. ASPIRIN [Concomitant]

REACTIONS (1)
  - FAT EMBOLISM [None]
